FAERS Safety Report 13239142 (Version 2)
Quarter: 2017Q1

REPORT INFORMATION
  Report Type: Spontaneous
  Country: FR (occurrence: FR)
  Receive Date: 20170216
  Receipt Date: 20170228
  Transmission Date: 20170428
  Serious: Yes (Hospitalization)
  Sender: FDA-Public Use
  Company Number: FR-PFIZER INC-2017068560

PATIENT
  Age: 37 Year
  Sex: Female

DRUGS (5)
  1. TRIATEC [Suspect]
     Active Substance: RAMIPRIL
     Dosage: 35 MG, SINGLE (28 TABLETS OF ORAL RAMIPRIL AT DOSE OF 1.25 MG)
     Route: 048
     Dates: start: 20170102, end: 20170102
  2. LERCAN [Suspect]
     Active Substance: LERCANIDIPINE
     Dosage: 600 MG, SINGLE (30 FILM COATED TABLETS AT A DOSE OF 20 MG)
     Route: 048
     Dates: start: 20170102, end: 20170102
  3. EUPRESSYL [Suspect]
     Active Substance: URAPIDIL
     Dosage: 900 MG, SINGLE (30 CAPSULES AT A DOSE 30 MG)
     Route: 048
     Dates: start: 20170102, end: 20170102
  4. CLAFORAN [Concomitant]
     Active Substance: CEFOTAXIME SODIUM
     Dosage: UNK
     Dates: start: 20170103
  5. FLAGYL [Concomitant]
     Active Substance: METRONIDAZOLE\METRONIDAZOLE HYDROCHLORIDE
     Dosage: UNK
     Dates: start: 20170103

REACTIONS (13)
  - Acute kidney injury [Recovered/Resolved]
  - Pneumonia aspiration [Recovered/Resolved]
  - Vomiting [Recovered/Resolved]
  - Hypokalaemia [Recovered/Resolved]
  - Intentional overdose [Unknown]
  - Tachypnoea [Recovered/Resolved]
  - Hypotension [Recovered/Resolved]
  - Hyponatraemia [Recovered/Resolved]
  - Metabolic acidosis [Recovered/Resolved]
  - Headache [Recovered/Resolved]
  - Malaise [Recovered/Resolved]
  - Bundle branch block right [Recovered/Resolved]
  - Sinus tachycardia [Recovered/Resolved]

NARRATIVE: CASE EVENT DATE: 20170102
